FAERS Safety Report 8272143-6 (Version None)
Quarter: 2012Q2

REPORT INFORMATION
  Report Type: 
  Country: None (occurrence: None)
  Receive Date: 20120410
  Receipt Date: 20120117
  Transmission Date: 20120825
  Serious: No
  Sender: FDA-Public Use
  Company Number: US-ASTRAZENECA-2011SE76329

PATIENT
  Age: 49 Year
  Sex: Male

DRUGS (11)
  1. IBUPROFEN [Concomitant]
  2. LEVOTHYROXINE SODIUM [Concomitant]
  3. MIRALAX [Concomitant]
  4. VANDETANIB [Suspect]
     Indication: THYROID CANCER
     Route: 048
  5. FENTANYL CITRATE [Concomitant]
  6. CALCIUM+D [Concomitant]
  7. DOCUSATE SODIUM [Concomitant]
  8. NORCO [Concomitant]
  9. ALLEGRA [Concomitant]
  10. SENNA [Concomitant]
  11. ZOFRAN [Concomitant]

REACTIONS (4)
  - EPISTAXIS [None]
  - MUSCLE TWITCHING [None]
  - RESTLESSNESS [None]
  - HYPERHIDROSIS [None]
